FAERS Safety Report 14246103 (Version 6)
Quarter: 2019Q4

REPORT INFORMATION
  Report Type: Report from Study
  Country: US (occurrence: US)
  Receive Date: 20171204
  Receipt Date: 20191105
  Transmission Date: 20200122
  Serious: Yes (Other)
  Sender: FDA-Public Use
  Company Number: PHHY2016US032554

PATIENT
  Age: 43 Year
  Sex: Male

DRUGS (1)
  1. GILENYA [Suspect]
     Active Substance: FINGOLIMOD HYDROCHLORIDE
     Indication: MULTIPLE SCLEROSIS
     Dosage: UNK, QD
     Route: 048

REACTIONS (13)
  - Multiple sclerosis relapse [Recovered/Resolved]
  - Pain in extremity [Unknown]
  - Concomitant disease aggravated [Recovered/Resolved]
  - White blood cell count decreased [Unknown]
  - Myelopathy [Recovered/Resolved]
  - Dysmetria [Recovered/Resolved]
  - Lymphocyte count decreased [Recovered/Resolved]
  - Nasopharyngitis [Unknown]
  - Fatigue [Unknown]
  - Condition aggravated [Recovered/Resolved]
  - Decreased activity [Unknown]
  - Urinary tract infection [Unknown]
  - Muscular weakness [Recovered/Resolved]

NARRATIVE: CASE EVENT DATE: 20160129
